FAERS Safety Report 8418768-6 (Version None)
Quarter: 2012Q2

REPORT INFORMATION
  Report Type: 
  Country: None (occurrence: None)
  Receive Date: 20120607
  Receipt Date: 20120529
  Transmission Date: 20120825
  Serious: Yes (Other)
  Sender: FDA-Public Use
  Company Number: US-ASTRAZENECA-2012SE34652

PATIENT
  Age: 77 Year
  Sex: Female
  Weight: 64.4 kg

DRUGS (2)
  1. FORTEO [Concomitant]
     Indication: BONE DISORDER
  2. NEXIUM [Suspect]
     Indication: GASTROOESOPHAGEAL REFLUX DISEASE
     Route: 048
     Dates: start: 19970101

REACTIONS (3)
  - BACK INJURY [None]
  - OSTEOPOROSIS [None]
  - CALCIUM METABOLISM DISORDER [None]
